FAERS Safety Report 5211338-2 (Version None)
Quarter: 2007Q1

REPORT INFORMATION
  Report Type: 
  Country: None (occurrence: None)
  Receive Date: 20070111
  Receipt Date: 20070103
  Transmission Date: 20070707
  Serious: Yes (Other)
  Sender: FDA-Public Use
  Company Number: 229629

PATIENT
  Sex: Male

DRUGS (2)
  1. AVASTIN [Suspect]
     Indication: RETINOPATHY
     Dosage: 1.25 INTRAVITREAL
     Dates: start: 20060227, end: 20060830
  2. ZYMAR [Concomitant]

REACTIONS (2)
  - EYE INFLAMMATION [None]
  - VISUAL ACUITY REDUCED [None]
